FAERS Safety Report 5471346-3 (Version None)
Quarter: 2007Q3

REPORT INFORMATION
  Report Type: 
  Country: None (occurrence: None)
  Receive Date: 20070928
  Receipt Date: 20060817
  Transmission Date: 20080115
  Serious: Yes (Hospitalization)
  Sender: FDA-Public Use
  Company Number: US-BRISTOL-MYERS SQUIBB COMPANY-13487327

PATIENT
  Sex: Male

DRUGS (2)
  1. DEFINITY [Suspect]
     Indication: ECHOCARDIOGRAM
     Dosage: THE PATIENT RECEIVED 3CC OF A SOLUTION OF 8.7CC SALINE AND 1.3CC DEFINITY.
     Route: 040
  2. SODIUM CHLORIDE [Concomitant]
     Indication: ECHOCARDIOGRAM

REACTIONS (1)
  - BACK PAIN [None]
